FAERS Safety Report 15129569 (Version 1)
Quarter: 2018Q3

REPORT INFORMATION
  Report Type: Spontaneous
  Country: US (occurrence: US)
  Receive Date: 20180711
  Receipt Date: 20180711
  Transmission Date: 20181010
  Serious: Yes (Other)
  Sender: FDA-Public Use
  Company Number: US-SA-2018SA185043

PATIENT
  Age: 66 Year
  Sex: Female
  Weight: 77.11 kg

DRUGS (9)
  1. DEXAMETHASONE. [Concomitant]
     Active Substance: DEXAMETHASONE
  2. DOXORUBICIN [Concomitant]
     Active Substance: DOXORUBICIN
  3. CYMBALTA [Concomitant]
     Active Substance: DULOXETINE HYDROCHLORIDE
  4. TAXOTERE [Suspect]
     Active Substance: DOCETAXEL
     Indication: BREAST CANCER FEMALE
     Dosage: 75 M2
     Route: 042
     Dates: start: 20090504, end: 20090504
  5. TRAMADOL. [Concomitant]
     Active Substance: TRAMADOL
  6. TRIAMTERENE. [Concomitant]
     Active Substance: TRIAMTERENE
  7. NEOSAR [Concomitant]
     Active Substance: CYCLOPHOSPHAMIDE
  8. FAMOTIDINE. [Concomitant]
     Active Substance: FAMOTIDINE
  9. TAXOTERE [Suspect]
     Active Substance: DOCETAXEL
     Dosage: 75 M2
     Route: 042
     Dates: start: 20090817, end: 20090817

REACTIONS (2)
  - Alopecia [Recovering/Resolving]
  - Psychological trauma [Unknown]

NARRATIVE: CASE EVENT DATE: 20090601
